FAERS Safety Report 24940766 (Version 1)
Quarter: 2025Q1

REPORT INFORMATION
  Report Type: Spontaneous
  Country: GB (occurrence: GB)
  Receive Date: 20250207
  Receipt Date: 20250207
  Transmission Date: 20250408
  Serious: Yes (Life-Threatening, Other)
  Sender: ORGANON
  Company Number: None

PATIENT
  Age: 68 Year
  Sex: Male
  Weight: 111 kg

DRUGS (6)
  1. FINASTERIDE [Suspect]
     Active Substance: FINASTERIDE
     Dosage: ONE TO BE TAKEN EACH DAY
     Dates: start: 20241217
  2. EZETIMIBE [Concomitant]
     Active Substance: EZETIMIBE
     Dosage: ONE TO BE TAKEN EACH DAY
     Dates: start: 20241217
  3. CLOTRIMAZOLE [Concomitant]
     Active Substance: CLOTRIMAZOLE
     Dosage: APPLY TWICE A DAY
     Dates: start: 20241217, end: 20250116
  4. CHLORHEXIDINE HYDROCHLORIDE\NEOMYCIN SULFATE [Concomitant]
     Active Substance: CHLORHEXIDINE HYDROCHLORIDE\NEOMYCIN SULFATE
     Indication: Essential hypertension
     Dosage: APPLY TO NOSTRILS FOUR TIMES A DAY FOR 10 DAYS
     Dates: start: 20250106
  5. SCHERIPROCT [CINCHOCAINE HYDROCHLORIDE;HEXACHLOROPHENE;PREDNISOLONE] [Concomitant]
     Indication: Essential hypertension
     Dosage: INSERT ONE SUPPOSITORY INTO THE RECTUM DAILY AFTER A BOWEL MOVEMENT
     Dates: start: 20250106
  6. EUMOVATE [Concomitant]
     Active Substance: CLOBETASONE BUTYRATE
     Indication: Essential hypertension
     Dosage: APPLY THINLY TWICE A DAY FOR 2 WEEKS
     Dates: start: 20250106

REACTIONS (1)
  - Suicidal ideation [Recovered/Resolved with Sequelae]
